FAERS Safety Report 25860349 (Version 4)
Quarter: 2025Q4

REPORT INFORMATION
  Report Type: Spontaneous
  Country: EU (occurrence: EU)
  Receive Date: 20250929
  Receipt Date: 20251017
  Transmission Date: 20260118
  Serious: Yes (Other)
  Sender: NOVARTIS
  Company Number: EU-002147023-NVSC2025DE147437

PATIENT
  Age: 7 Year
  Sex: Female
  Weight: 21 kg

DRUGS (3)
  1. EXJADE [Suspect]
     Active Substance: DEFERASIROX
     Indication: Iron overload
     Dosage: 270 MG, QD
     Route: 048
     Dates: start: 202410, end: 20250828
  2. Infectobicillin [Concomitant]
     Indication: Product used for unknown indication
     Dosage: UNK, QD (2X250000 IU)
     Route: 042
     Dates: start: 202405, end: 202509
  3. SIKLOS [Concomitant]
     Active Substance: HYDROXYUREA
     Indication: Sickle cell anaemia
     Dosage: 300 MG, QD
     Route: 048
     Dates: start: 202408, end: 202508

REACTIONS (7)
  - Acute kidney injury [Recovered/Resolved]
  - Seizure [Recovered/Resolved]
  - Metabolic acidosis [Unknown]
  - Glycosuria [Recovered/Resolved]
  - Hypoglycaemia [Recovered/Resolved]
  - Vomiting [Recovered/Resolved]
  - Overchelation [Unknown]

NARRATIVE: CASE EVENT DATE: 20250101
